FAERS Safety Report 7961002-1 (Version None)
Quarter: 2011Q4

REPORT INFORMATION
  Report Type: 
  Country: None (occurrence: None)
  Receive Date: 20111207
  Receipt Date: 20111205
  Transmission Date: 20120403
  Serious: Yes (Other)
  Sender: FDA-Public Use
  Company Number: US-PFIZER INC-2011296421

PATIENT
  Sex: Female

DRUGS (3)
  1. PRISTIQ [Suspect]
     Dosage: 50 MG, DAILY
     Dates: start: 20111204
  2. PRISTIQ [Suspect]
     Dosage: 100 MG, DAILY
     Dates: start: 20111001
  3. PRISTIQ [Suspect]
     Indication: DEPRESSION
     Dosage: 50 MG, DAILY
     Dates: start: 20110601, end: 20111001

REACTIONS (6)
  - SWELLING FACE [None]
  - EYE OEDEMA [None]
  - BLOOD PRESSURE INCREASED [None]
  - VISION BLURRED [None]
  - INSOMNIA [None]
  - HEADACHE [None]
